FAERS Safety Report 4358383-7 (Version None)
Quarter: 2004Q2

REPORT INFORMATION
  Report Type: 
  Country: None (occurrence: None)
  Receive Date: 20040512
  Receipt Date: 20040512
  Transmission Date: 20050107
  Serious: Yes (Other)
  Sender: FDA-Public Use
  Company Number: None

PATIENT
  Age: 24 Year
  Sex: Female
  Weight: 131.5431 kg

DRUGS (2)
  1. CELEXA [Suspect]
     Indication: DEPRESSION
     Dosage: 20 MG PO HS
     Route: 048
     Dates: start: 20040406, end: 20040408
  2. TRAZODONE HCL [Suspect]
     Indication: INSOMNIA
     Dosage: 50 MG PO HS
     Route: 048
     Dates: start: 20040406, end: 20040408

REACTIONS (3)
  - DYSPHAGIA [None]
  - PRURITUS [None]
  - RASH PRURITIC [None]
